FAERS Safety Report 4509260-X (Version None)
Quarter: 2004Q4

REPORT INFORMATION
  Report Type: 
  Country: None (occurrence: None)
  Receive Date: 20041025
  Receipt Date: 20040820
  Transmission Date: 20050328
  Serious: Yes (Other)
  Sender: FDA-Public Use
  Company Number: US-JNJFOC-20040807542

PATIENT
  Age: 42 Year
  Sex: Female
  Weight: 64.8644 kg

DRUGS (4)
  1. REMICADE [Suspect]
     Indication: RHEUMATOID ARTHRITIS
     Dosage: 10 MG/KG, INTRAVENOUS
     Route: 042
     Dates: start: 20000301
  2. LEXAPRO [Concomitant]
  3. OXYCONTIN [Concomitant]
  4. CANNABIS [Concomitant]

REACTIONS (1)
  - NEUROPATHY PERIPHERAL [None]
